FAERS Safety Report 9025487 (Version 1)
Quarter: 2013Q1

REPORT INFORMATION
  Report Type: Spontaneous
  Country: BG (occurrence: BG)
  Receive Date: 20130122
  Receipt Date: 20130122
  Transmission Date: 20140127
  Serious: Yes (Death)
  Sender: FDA-Public Use
  Company Number: BG-ASTRAZENECA-2013SE04155

PATIENT
  Age: 70 Year
  Sex: Female

DRUGS (2)
  1. BRILIQUE [Suspect]
     Indication: ACUTE CORONARY SYNDROME
     Route: 048
  2. ASPIRIN [Concomitant]

REACTIONS (1)
  - Haemorrhagic stroke [Fatal]
